FAERS Safety Report 8895341 (Version 1)
Quarter: 2012Q4

REPORT INFORMATION
  Report Type: 
  Country: US (occurrence: US)
  Receive Date: 20121108
  Receipt Date: 20121108
  Transmission Date: 20130627
  Serious: No
  Sender: FDA-Public Use
  Company Number: US-PFIZER INC-2012277857

PATIENT

DRUGS (1)
  1. DOXORUBICIN HCL [Suspect]
     Indication: CANCER
     Dosage: UNK
     Route: 042
     Dates: start: 201210

REACTIONS (1)
  - Stomatitis [Not Recovered/Not Resolved]
